FAERS Safety Report 6769310-7 (Version None)
Quarter: 2010Q2

REPORT INFORMATION
  Report Type: 
  Country: None (occurrence: None)
  Receive Date: 20100615
  Receipt Date: 20100607
  Transmission Date: 20101027
  Serious: Yes (Other)
  Sender: FDA-Public Use
  Company Number: US-JNJFOC-20100603425

PATIENT
  Sex: Female
  Weight: 54.43 kg

DRUGS (2)
  1. CONCERTA [Suspect]
     Indication: ATTENTION DEFICIT/HYPERACTIVITY DISORDER
     Route: 048
  2. HUMALOG [Suspect]
     Indication: TYPE 1 DIABETES MELLITUS
     Route: 065

REACTIONS (1)
  - GLYCOSYLATED HAEMOGLOBIN INCREASED [None]
